FAERS Safety Report 5336424-8 (Version None)
Quarter: 2007Q2

REPORT INFORMATION
  Report Type: 
  Country: None (occurrence: None)
  Receive Date: 20070523
  Receipt Date: 20070508
  Transmission Date: 20071010
  Serious: Yes (Death)
  Sender: FDA-Public Use
  Company Number: 070504-0000482

PATIENT
  Age: 18 Year
  Sex: Female

DRUGS (4)
  1. DESOXYN [Suspect]
     Indication: DRUG USE FOR UNKNOWN INDICATION
  2. PARAMETHOXYMETHAMPHETAMINE [Suspect]
     Indication: DRUG USE FOR UNKNOWN INDICATION
  3. KETAMINE (KETAMINE) [Suspect]
     Indication: DRUG USE FOR UNKNOWN INDICATION
  4. NORKETAMINE [Suspect]
     Indication: DRUG USE FOR UNKNOWN INDICATION

REACTIONS (4)
  - COMPLETED SUICIDE [None]
  - CYANOSIS [None]
  - DRUG TOXICITY [None]
  - OVERDOSE [None]
